FAERS Safety Report 24552974 (Version 1)
Quarter: 2024Q4

REPORT INFORMATION
  Report Type: Spontaneous
  Country: KR (occurrence: KR)
  Receive Date: 20241027
  Receipt Date: 20241027
  Transmission Date: 20250114
  Serious: Yes (Hospitalization)
  Sender: BRISTOL-MYERS SQUIBB COMPANY
  Company Number: KR-BRISTOL-MYERS SQUIBB COMPANY-2024-166789

PATIENT
  Age: 53 Year
  Sex: Male
  Weight: 67.7 kg

DRUGS (7)
  1. BARACLUDE [Suspect]
     Active Substance: ENTECAVIR
     Indication: Hepatitis B
     Dates: start: 2020
  2. MYCOPHENOLATE MOFETIL [Suspect]
     Active Substance: MYCOPHENOLATE MOFETIL
     Indication: Prophylaxis against transplant rejection
     Dates: start: 20200716
  3. URSODIOL [Concomitant]
     Active Substance: URSODIOL
     Indication: Hepatic function abnormal
     Dates: start: 20200625
  4. SULFAMETHOXAZOLE [Concomitant]
     Active Substance: SULFAMETHOXAZOLE
     Indication: Infection prophylaxis
     Dates: start: 20200622, end: 20210318
  5. TRIMETHOPRIM [Concomitant]
     Active Substance: TRIMETHOPRIM
     Indication: Infection prophylaxis
     Dates: start: 20200622, end: 20210318
  6. ALMAGATE [Concomitant]
     Active Substance: ALMAGATE
     Indication: Gastrointestinal disorder prophylaxis
     Dates: start: 20200625, end: 20210318
  7. FAMOTIDINE [Concomitant]
     Active Substance: FAMOTIDINE
     Indication: Gastrointestinal disorder prophylaxis
     Dates: start: 20200622, end: 20210318

REACTIONS (1)
  - Lipoma [Recovered/Resolved]

NARRATIVE: CASE EVENT DATE: 20210318
